FAERS Safety Report 10175875 (Version 1)
Quarter: 2014Q2

REPORT INFORMATION
  Report Type: Spontaneous
  Country: US (occurrence: None)
  Receive Date: 20140425
  Receipt Date: 20140425
  Transmission Date: 20141212
  Serious: No
  Sender: FDA-Public Use
  Company Number: AP356-00356-SPO-US

PATIENT
  Age: 58 Year
  Sex: Female
  Weight: 92.7 kg

DRUGS (3)
  1. BELVIQ (LORCASERIN HYDROCHLORIDE) [Suspect]
     Indication: WEIGHT DECREASED
     Dosage: 2 IN 1 D
     Route: 048
     Dates: start: 20131226
  2. LEVEMIR (INSULIN DETEMIR) [Concomitant]
  3. HUMALOG (INSULIN) [Concomitant]

REACTIONS (2)
  - Fatigue [None]
  - Cognitive disorder [None]
